FAERS Safety Report 9318745 (Version 1)
Quarter: 2013Q3

REPORT INFORMATION
  Report Type: Spontaneous
  Country: IT (occurrence: None)
  Receive Date: 20130524
  Receipt Date: 20130524
  Transmission Date: 20140515
  Serious: Yes (Other)
  Sender: FDA-Public Use
  Company Number: 2013AP005332

PATIENT
  Age: 77 Year
  Sex: Male

DRUGS (5)
  1. LEVOFLOXACIN [Suspect]
     Indication: LUNG DISORDER
     Route: 048
     Dates: start: 20130504, end: 20130511
  2. ESOMEPRAZOLE MAGNESIUM [Concomitant]
  3. FOLIC ACID [Concomitant]
  4. ALLOPURINOL [Concomitant]
  5. AMLODIPINE (AMLODIPINE) [Concomitant]

REACTIONS (5)
  - Diarrhoea [None]
  - Nausea [None]
  - Presyncope [None]
  - Renal failure chronic [None]
  - Condition aggravated [None]
